FAERS Safety Report 21283539 (Version 1)
Quarter: 2022Q3

REPORT INFORMATION
  Report Type: Spontaneous
  Country: US (occurrence: US)
  Receive Date: 20220901
  Receipt Date: 20220901
  Transmission Date: 20221027
  Serious: Yes (Death, Life-Threatening, Other)
  Sender: FDA-Public Use
  Company Number: US-009507513-2208USA011256

PATIENT
  Sex: Male

DRUGS (1)
  1. KEYTRUDA [Suspect]
     Active Substance: PEMBROLIZUMAB
     Indication: Malignant melanoma
     Dosage: UNK
     Route: 042
     Dates: start: 20220207

REACTIONS (4)
  - General physical health deterioration [Unknown]
  - Immunodeficiency [Unknown]
  - Death [Fatal]
  - Myasthenia gravis [Unknown]

NARRATIVE: CASE EVENT DATE: 20220101
